FAERS Safety Report 9516629 (Version 1)
Quarter: 2013Q3

REPORT INFORMATION
  Report Type: Spontaneous
  Country: FR (occurrence: FR)
  Receive Date: 20130911
  Receipt Date: 20130911
  Transmission Date: 20140515
  Serious: Yes (Hospitalization)
  Sender: FDA-Public Use
  Company Number: FR-GLAXOSMITHKLINE-B0905430A

PATIENT
  Age: 82 Year
  Sex: Female

DRUGS (8)
  1. ARIXTRA [Suspect]
     Indication: PRODUCT USED FOR UNKNOWN INDICATION
     Dosage: 2.5MG PER DAY
     Route: 058
     Dates: start: 201305, end: 20130604
  2. KARDEGIC [Suspect]
     Indication: PRODUCT USED FOR UNKNOWN INDICATION
     Dosage: 75MG PER DAY
     Route: 048
     Dates: end: 20130604
  3. EUPANTOL [Concomitant]
     Dosage: 40MG PER DAY
     Route: 065
  4. ATENOLOL [Concomitant]
     Dosage: 50MG UNKNOWN
     Route: 048
  5. XATRAL [Concomitant]
     Dosage: 10MG PER DAY
     Route: 065
     Dates: end: 20130604
  6. HALDOL [Concomitant]
     Dosage: 5DROP THREE TIMES PER DAY
     Route: 065
  7. CORDARONE [Concomitant]
     Dosage: 1TAB PER DAY
     Route: 048
  8. PREVISCAN [Concomitant]
     Route: 065
     Dates: end: 201305

REACTIONS (2)
  - Haematoma [Recovering/Resolving]
  - Anaemia [Not Recovered/Not Resolved]
